FAERS Safety Report 5630087-X (Version None)
Quarter: 2008Q1

REPORT INFORMATION
  Report Type: 
  Country: None (occurrence: None)
  Receive Date: 20080218
  Receipt Date: 20080213
  Transmission Date: 20080703
  Serious: Yes (Other)
  Sender: FDA-Public Use
  Company Number: PHBS2008US00562

PATIENT
  Sex: Male

DRUGS (2)
  1. BACLOFEN [Suspect]
     Route: 048
  2. LIORESAL [Suspect]
     Indication: MUSCLE SPASTICITY
     Route: 037

REACTIONS (5)
  - ASTHENIA [None]
  - HYPOTONIA [None]
  - INCOHERENT [None]
  - MUSCULOSKELETAL STIFFNESS [None]
  - OVERDOSE [None]
